FAERS Safety Report 7230338-4 (Version None)
Quarter: 2011Q1

REPORT INFORMATION
  Report Type: 
  Country: None (occurrence: None)
  Receive Date: 20110118
  Receipt Date: 20110114
  Transmission Date: 20110831
  Serious: No
  Sender: FDA-Public Use
  Company Number: US-PFIZER INC-2011010288

PATIENT
  Sex: Male
  Weight: 74.8 kg

DRUGS (4)
  1. DESYREL [Concomitant]
     Indication: DEPRESSION
  2. EFFEXOR [Suspect]
     Indication: BIPOLAR I DISORDER
     Dosage: 75 MG TWO TABLETS IN THE MORNING AND ONE TABLET AT NOON
     Route: 048
  3. DESYREL [Concomitant]
     Indication: ANXIETY
     Dosage: UNK
  4. EFFEXOR [Suspect]
     Indication: BIPOLAR DISORDER

REACTIONS (1)
  - DRUG EFFECT DECREASED [None]
